FAERS Safety Report 9338550 (Version 2)
Quarter: 2013Q3

REPORT INFORMATION
  Report Type: Spontaneous
  Country: JP (occurrence: JP)
  Receive Date: 20130610
  Receipt Date: 20130705
  Transmission Date: 20140515
  Serious: Yes (Hospitalization, Disabling)
  Sender: FDA-Public Use
  Company Number: JP-JNJFOC-20130601209

PATIENT
  Age: 82 Year
  Sex: Female
  Weight: 27 kg

DRUGS (11)
  1. XARELTO [Suspect]
     Indication: CEREBROVASCULAR ACCIDENT PROPHYLAXIS
     Route: 048
     Dates: start: 20130524, end: 20130606
  2. XARELTO [Suspect]
     Indication: CEREBROVASCULAR ACCIDENT PROPHYLAXIS
     Route: 048
     Dates: start: 201305, end: 20130523
  3. XARELTO [Suspect]
     Indication: ATRIAL FIBRILLATION
     Route: 048
     Dates: start: 20130524, end: 20130606
  4. XARELTO [Suspect]
     Indication: ATRIAL FIBRILLATION
     Route: 048
     Dates: start: 201305, end: 20130523
  5. HOLIN [Suspect]
     Indication: PRODUCT USED FOR UNKNOWN INDICATION
     Route: 048
  6. HERBESSER R [Concomitant]
     Route: 048
  7. NEXIUM [Concomitant]
     Route: 048
  8. ALDACTONE A [Concomitant]
     Route: 048
  9. FERROMIA [Concomitant]
     Route: 048
  10. MAGMITT [Concomitant]
     Route: 048
  11. LASIX [Concomitant]
     Route: 048

REACTIONS (3)
  - Cerebral infarction [Recovering/Resolving]
  - Embolic stroke [Recovering/Resolving]
  - Embolic stroke [None]
